FAERS Safety Report 8491309-3 (Version None)
Quarter: 2012Q3

REPORT INFORMATION
  Report Type: 
  Country: None (occurrence: None)
  Receive Date: 20120706
  Receipt Date: 20120702
  Transmission Date: 20120928
  Serious: Yes (Hospitalization)
  Sender: FDA-Public Use
  Company Number: PHEH2012US013104

PATIENT
  Sex: Male

DRUGS (1)
  1. EXJADE [Suspect]
     Indication: IRON OVERLOAD
     Dosage: 1750 MG, QD
     Route: 048

REACTIONS (5)
  - PAIN [None]
  - RENAL FAILURE ACUTE [None]
  - HAEMOLYSIS [None]
  - DEHYDRATION [None]
  - ASTHENIA [None]
